FAERS Safety Report 17728969 (Version 1)
Quarter: 2020Q2

REPORT INFORMATION
  Report Type: Report from Study
  Country: GB (occurrence: GB)
  Receive Date: 20200430
  Receipt Date: 20200430
  Transmission Date: 20200714
  Serious: Yes (Other)
  Sender: FDA-Public Use
  Company Number: GB-MYLANLABS-2020M1042567

PATIENT

DRUGS (18)
  1. FOLINIC ACID [Suspect]
     Active Substance: LEUCOVORIN
     Indication: COLORECTAL CANCER
     Dosage: ON DAY 1; SCHEDULED TO RECEIVE CHEMOTHERAPY WITH 14 DAY CYCLE FOR 12 WEEKS
     Route: 042
  2. HEPARINISED SALINE [Suspect]
     Active Substance: HEPARIN SODIUM
     Indication: PRODUCT USED FOR UNKNOWN INDICATION
     Dosage: FLUSH LINE; ON DAY 3
     Route: 065
  3. PARACETAMOL [Suspect]
     Active Substance: ACETAMINOPHEN
     Indication: PRODUCT USED FOR UNKNOWN INDICATION
     Dosage: ON DAY 1
     Route: 048
  4. DEXAMETHASONE. [Suspect]
     Active Substance: DEXAMETHASONE
     Indication: METASTASES TO LIVER
  5. DEXTROSE. [Suspect]
     Active Substance: DEXTROSE
     Dosage: FLUSH LINE
     Route: 065
  6. SALINE                             /00075401/ [Suspect]
     Active Substance: SODIUM CHLORIDE
     Indication: PRODUCT USED FOR UNKNOWN INDICATION
     Dosage: FLUSH LINE, ON DAY1
     Route: 065
  7. FLUOROURACIL. [Suspect]
     Active Substance: FLUOROURACIL
     Indication: METASTASES TO LIVER
     Dosage: ON DAY 1; SCHEDULED TO RECEIVE CHEMOTHERAPY WITH 14 DAY CYCLE FOR 12 WEEKS
     Route: 040
  8. DEXAMETHASONE. [Suspect]
     Active Substance: DEXAMETHASONE
     Indication: COLORECTAL CANCER
     Dosage: ON DAY 1; SCHEDULED TO RECEIVE CHEMOTHERAPY WITH 14 DAY CYCLE FOR 12 WEEKS
     Route: 040
  9. DEXTROSE. [Suspect]
     Active Substance: DEXTROSE
     Indication: PRODUCT USED FOR UNKNOWN INDICATION
     Dosage: FLUSH LINE, ON DAY 1
     Route: 065
  10. SALINE                             /00075401/ [Suspect]
     Active Substance: SODIUM CHLORIDE
     Dosage: FLUSH LINE; SCHEDULED FOR 2H
     Route: 065
  11. FLUOROURACIL. [Suspect]
     Active Substance: FLUOROURACIL
     Indication: COLORECTAL CANCER
     Dosage: ON DAY 1-3; SCHEDULED TO RECEIVE CHEMOTHERAPY WITH 14 DAY CYCLE FOR 12 WEEKS
     Route: 042
  12. RANITIDINE. [Suspect]
     Active Substance: RANITIDINE
     Indication: PRODUCT USED FOR UNKNOWN INDICATION
     Dosage: ON DAY 1
     Route: 048
  13. GRANISETRON [Suspect]
     Active Substance: GRANISETRON
     Indication: PRODUCT USED FOR UNKNOWN INDICATION
     Dosage: ON DAY 1; SCHEDULED TO RECEIVE CHEMOTHERAPY WITH 14 DAY CYCLE FOR 12 WEEKS
     Route: 040
  14. DEXTROSE. [Suspect]
     Active Substance: DEXTROSE
     Dosage: ON DAY 1; SCHEDULED TO RECEIVE CHEMOTHERAPY WITH 14 DAY CYCLE FOR 12 WEEKS
     Route: 065
  15. CETUXIMAB. [Suspect]
     Active Substance: CETUXIMAB
     Indication: COLORECTAL CANCER
     Dosage: ON DAY 1; SCHEDULED TO RECEIVE CHEMOTHERAPY WITH 14 DAY CYCLE FOR 12 WEEKS
     Route: 042
  16. FOLINIC ACID [Suspect]
     Active Substance: LEUCOVORIN
     Indication: METASTASES TO LIVER
  17. CHLORPHENAMINE [Suspect]
     Active Substance: CHLORPHENIRAMINE MALEATE
     Indication: PRODUCT USED FOR UNKNOWN INDICATION
     Dosage: ON DAY 1
     Route: 042
  18. CETUXIMAB. [Suspect]
     Active Substance: CETUXIMAB
     Indication: METASTASES TO LIVER

REACTIONS (1)
  - Biliary tract infection [Unknown]
